FAERS Safety Report 5413058-8 (Version None)
Quarter: 2007Q3

REPORT INFORMATION
  Report Type: 
  Country: None (occurrence: None)
  Receive Date: 20070813
  Receipt Date: 20070801
  Transmission Date: 20080115
  Serious: Yes (Death)
  Sender: FDA-Public Use
  Company Number: PH-PFIZER INC-2007063177

PATIENT
  Sex: Male

DRUGS (7)
  1. VFEND [Suspect]
     Indication: PERITONITIS
     Route: 048
  2. VFEND [Suspect]
     Dosage: TEXT:200MG BID  TDD:400MG
  3. CEFEPIME [Concomitant]
  4. METRONIDAZOLE [Concomitant]
  5. LEVOPHED [Concomitant]
  6. DOPAMIN [Concomitant]
  7. MEROPENEM [Concomitant]

REACTIONS (1)
  - SEPTIC SHOCK [None]
